FAERS Safety Report 11109819 (Version 4)
Quarter: 2020Q1

REPORT INFORMATION
  Report Type: Spontaneous
  Country: US (occurrence: US)
  Receive Date: 20150513
  Receipt Date: 20200219
  Transmission Date: 20200409
  Serious: Yes (Death, Hospitalization)
  Sender: FDA-Public Use
  Company Number: US-JNJFOC-20150503202

PATIENT
  Age: 26 Year
  Sex: Male

DRUGS (2)
  1. XARELTO [Suspect]
     Active Substance: RIVAROXABAN
     Indication: THROMBOSIS PROPHYLAXIS
     Route: 048
     Dates: start: 20140508
  2. XARELTO [Suspect]
     Active Substance: RIVAROXABAN
     Indication: THROMBOSIS PROPHYLAXIS

REACTIONS (10)
  - Haematuria [Unknown]
  - Deep vein thrombosis [Unknown]
  - Oedema peripheral [Unknown]
  - Urinary tract infection [Recovered/Resolved]
  - Stoma site haemorrhage [Unknown]
  - Occult blood [Unknown]
  - Renal haemorrhage [Fatal]
  - Ileus [Unknown]
  - Anaemia folate deficiency [Unknown]
  - Cystitis [Unknown]

NARRATIVE: CASE EVENT DATE: 201405
